FAERS Safety Report 5004238-4 (Version None)
Quarter: 2006Q2

REPORT INFORMATION
  Report Type: 
  Country: None (occurrence: None)
  Receive Date: 20060517
  Receipt Date: 20060206
  Transmission Date: 20061013
  Serious: Yes (Hospitalization, Other)
  Sender: FDA-Public Use
  Company Number: US-MERCK-0602USA01414

PATIENT
  Age: 64 Year
  Sex: Male
  Weight: 91 kg

DRUGS (7)
  1. VIOXX [Suspect]
     Indication: ARTHRALGIA
     Route: 048
     Dates: start: 20001001, end: 20040701
  2. VIOXX [Suspect]
     Indication: ARTHRITIS
     Route: 048
     Dates: start: 20001001, end: 20040701
  3. LESCOL [Concomitant]
     Route: 065
  4. COZAAR [Concomitant]
     Route: 065
  5. HYTRIN [Concomitant]
     Route: 065
  6. NEXIUM [Concomitant]
     Route: 065
  7. CELEXA [Concomitant]
     Route: 065

REACTIONS (13)
  - ANGINA PECTORIS [None]
  - ARTERIOSCLEROSIS [None]
  - COLONIC POLYP [None]
  - CORONARY ARTERY DISEASE [None]
  - DIVERTICULUM [None]
  - GASTRITIS [None]
  - HAEMATURIA [None]
  - HIATUS HERNIA [None]
  - MICTURITION URGENCY [None]
  - MYOCARDIAL INFARCTION [None]
  - NASAL POLYPS [None]
  - NEPHROLITHIASIS [None]
  - RECTAL HAEMORRHAGE [None]
